FAERS Safety Report 10099465 (Version 1)
Quarter: 2014Q2

REPORT INFORMATION
  Report Type: Spontaneous
  Country: US (occurrence: US)
  Receive Date: 20140423
  Receipt Date: 20140423
  Transmission Date: 20141212
  Serious: Yes (Hospitalization)
  Sender: FDA-Public Use
  Company Number: US-BAYER-2014-059581

PATIENT
  Age: 26 Year
  Sex: Female
  Weight: 108.84 kg

DRUGS (3)
  1. YAZ [Suspect]
  2. FEXOFENADINE [Concomitant]
     Dosage: 180 MG, UNK
     Route: 048
     Dates: start: 20080829
  3. ALLEGRA [Concomitant]

REACTIONS (1)
  - Deep vein thrombosis [None]
